FAERS Safety Report 5851813-0 (Version None)
Quarter: 2008Q3

REPORT INFORMATION
  Report Type: 
  Country: None (occurrence: None)
  Receive Date: 20080820
  Receipt Date: 20080819
  Transmission Date: 20090109
  Serious: Yes (Hospitalization, Other)
  Sender: FDA-Public Use
  Company Number: US-ABBOTT-08P-163-0469485-00

PATIENT
  Sex: Female
  Weight: 74.91 kg

DRUGS (11)
  1. HUMIRA [Suspect]
     Indication: RHEUMATOID ARTHRITIS
     Route: 058
     Dates: start: 20060101, end: 20080430
  2. HUMIRA [Suspect]
     Dates: start: 20080516, end: 20080627
  3. PREDNISONE TAB [Concomitant]
     Indication: DRUG USE FOR UNKNOWN INDICATION
  4. IBANDRONATE SODIUM [Concomitant]
     Indication: OSTEOPENIA
     Route: 048
  5. MAXZIDE [Concomitant]
     Indication: HYPERTENSION
  6. OLMESARTAN MEDOXOMIL [Concomitant]
     Indication: HYPERTENSION
  7. CELECOXIB [Concomitant]
     Indication: RHEUMATOID ARTHRITIS
  8. SERETIDE [Concomitant]
     Indication: HYPERSENSITIVITY
     Route: 055
  9. FEXOFENADINE [Concomitant]
     Indication: HYPERSENSITIVITY
     Route: 048
  10. MOMETASONE FUROATE [Concomitant]
     Indication: HYPERSENSITIVITY
  11. FLUTICASONE PROPIONATE [Concomitant]
     Indication: HYPERSENSITIVITY

REACTIONS (5)
  - CAROTID ARTERY OCCLUSION [None]
  - LYMPHADENOPATHY [None]
  - LYMPHOMA [None]
  - MOUTH ULCERATION [None]
  - STOMATITIS [None]
